FAERS Safety Report 6312596-3 (Version None)
Quarter: 2009Q3

REPORT INFORMATION
  Report Type: 
  Country: None (occurrence: None)
  Receive Date: 20090813
  Receipt Date: 20090731
  Transmission Date: 20100115
  Serious: No
  Sender: FDA-Public Use
  Company Number: 430048K09USA

PATIENT
  Sex: Female

DRUGS (1)
  1. NOVANTRONE [Suspect]
     Indication: MULTIPLE SCLEROSIS

REACTIONS (2)
  - DIABETIC COMA [None]
  - MUSCULOSKELETAL DISORDER [None]
